FAERS Safety Report 20791739 (Version 1)
Quarter: 2022Q2

REPORT INFORMATION
  Report Type: Spontaneous
  Country: US (occurrence: US)
  Receive Date: 20220505
  Receipt Date: 20220505
  Transmission Date: 20220721
  Serious: No
  Sender: FDA-Public Use
  Company Number: US-NOVARTISTESTPH-NVSC2022US103674

PATIENT
  Sex: Female

DRUGS (1)
  1. ENTRESTO [Suspect]
     Active Substance: SACUBITRIL\VALSARTAN
     Indication: Product used for unknown indication
     Dosage: 50 MG, (24.3 MG SACUBITRIL AND 25.7 MG VALSARTAN)
     Route: 065

REACTIONS (3)
  - Ejection fraction abnormal [Recovering/Resolving]
  - Stress [Unknown]
  - Hypotension [Unknown]
